FAERS Safety Report 4727551-4 (Version None)
Quarter: 2005Q3

REPORT INFORMATION
  Report Type: 
  Country: None (occurrence: None)
  Receive Date: 20050728
  Receipt Date: 20050728
  Transmission Date: 20060218
  Serious: No
  Sender: FDA-Public Use
  Company Number: None

PATIENT
  Sex: Male
  Weight: 77 kg

DRUGS (7)
  1. LISINOPRIL [Suspect]
     Indication: HYPERTENSION
     Dosage: 20MG   QAM    ORAL
     Route: 048
     Dates: start: 20050414, end: 20050511
  2. ABILIFY [Suspect]
     Indication: DEPRESSION
     Dosage: 10MG     QDAY  ORAL
     Route: 048
     Dates: start: 20050503, end: 20050511
  3. ABILIFY [Suspect]
     Indication: PSYCHOTIC DISORDER
     Dosage: 10MG     QDAY  ORAL
     Route: 048
     Dates: start: 20050503, end: 20050511
  4. BUPROPION [Concomitant]
  5. TRAZODONE HCL [Concomitant]
  6. ASPIRIN [Concomitant]
  7. M.V.I. [Concomitant]

REACTIONS (1)
  - HYPERKALAEMIA [None]
